FAERS Safety Report 10069355 (Version 2)
Quarter: 2014Q3

REPORT INFORMATION
  Report Type: Report from Study
  Country: JP (occurrence: JP)
  Receive Date: 20140410
  Receipt Date: 20140731
  Transmission Date: 20150326
  Serious: Yes (Hospitalization)
  Sender: FDA-Public Use
  Company Number: JP-MERCK-1404JPN003662

PATIENT
  Age: 78 Year
  Sex: Female

DRUGS (11)
  1. BIO-THREE [Concomitant]
     Active Substance: HERBALS
     Dosage: UNK
     Dates: end: 20120819
  2. GLACTIV [Suspect]
     Active Substance: SITAGLIPTIN
     Indication: TYPE 2 DIABETES MELLITUS
     Dosage: 50 MG, QD ONCE A DAY AFTER BREAKFAST)
     Route: 048
     Dates: start: 20120523, end: 20120819
  3. ASPARA CA [Concomitant]
     Dosage: UNK
     Dates: end: 20120819
  4. MEVALOTIN [Concomitant]
     Active Substance: PRAVASTATIN SODIUM
     Dosage: UNK
     Dates: end: 20120819
  5. DEPAS [Concomitant]
     Active Substance: ETIZOLAM
  6. GLYCORAN [Concomitant]
     Active Substance: GLYCERIN
     Dosage: UNK
     Dates: end: 20120819
  7. AMARYL [Concomitant]
     Active Substance: GLIMEPIRIDE
     Dosage: UNK
     Dates: end: 20120819
  8. ALFAROL [Concomitant]
     Active Substance: ALFACALCIDOL
  9. ACINON [Concomitant]
     Active Substance: NIZATIDINE
     Dosage: UNK
     Dates: end: 20120819
  10. SENNA [Concomitant]
     Active Substance: SENNA LEAF\SENNOSIDES\SENNOSIDES A AND B
  11. HALCION [Concomitant]
     Active Substance: TRIAZOLAM

REACTIONS (1)
  - Urinary tract infection [Recovered/Resolved]

NARRATIVE: CASE EVENT DATE: 20120819
